FAERS Safety Report 6576485-1 (Version None)
Quarter: 2010Q1

REPORT INFORMATION
  Report Type: 
  Country: None (occurrence: None)
  Receive Date: 20100210
  Receipt Date: 20100202
  Transmission Date: 20100710
  Serious: Yes (Other)
  Sender: FDA-Public Use
  Company Number: US-PFIZER INC-2010014746

PATIENT
  Sex: Female
  Weight: 49.887 kg

DRUGS (1)
  1. DEPO-PROVERA [Suspect]
     Indication: CONTRACEPTION
     Dosage: UNK
     Dates: start: 20090101, end: 20090101

REACTIONS (5)
  - DANDRUFF [None]
  - DRY SKIN [None]
  - PIGMENTATION DISORDER [None]
  - PRURITUS GENERALISED [None]
  - SKIN EXFOLIATION [None]
